FAERS Safety Report 21980289 (Version 1)
Quarter: 2023Q1

REPORT INFORMATION
  Report Type: Report from Study
  Country: RO (occurrence: RO)
  Receive Date: 20230210
  Receipt Date: 20230210
  Transmission Date: 20230418
  Serious: Yes (Death)
  Sender: FDA-Public Use
  Company Number: RO-ABBVIE-4303425

PATIENT
  Age: 80 Year
  Sex: Male

DRUGS (2)
  1. DASABUVIR [Suspect]
     Active Substance: DASABUVIR
     Indication: Chronic hepatitis C
     Dosage: 1-0-1
     Route: 065
     Dates: start: 20221216, end: 20221230
  2. OMBITASVIR\PARITAPREVIR\RITONAVIR [Suspect]
     Active Substance: OMBITASVIR\PARITAPREVIR\RITONAVIR
     Indication: Chronic hepatitis C
     Dosage: 2-0-0
     Route: 065
     Dates: start: 20221216, end: 20221230

REACTIONS (1)
  - Death [Fatal]

NARRATIVE: CASE EVENT DATE: 20221230
